FAERS Safety Report 24061478 (Version 2)
Quarter: 2024Q3

REPORT INFORMATION
  Report Type: Spontaneous
  Country: PT (occurrence: PT)
  Receive Date: 20240708
  Receipt Date: 20240708
  Transmission Date: 20241017
  Serious: Yes (Life-Threatening, Hospitalization, Other)
  Sender: PFIZER
  Company Number: PT-PFIZER INC-PV202400086499

PATIENT
  Age: 8 Decade
  Sex: Male

DRUGS (17)
  1. LORAZEPAM [Suspect]
     Active Substance: LORAZEPAM
     Dosage: 2.5 MG, DAILY
  2. QUETIAPINE FUMARATE [Suspect]
     Active Substance: QUETIAPINE FUMARATE
     Dosage: 100 MG, DAILY
  3. CANDESARTAN [Suspect]
     Active Substance: CANDESARTAN
     Dosage: 8 MG, DAILY
  4. AMLODIPINE [Suspect]
     Active Substance: AMLODIPINE BESYLATE
     Dosage: 5 MG, DAILY
  5. METFORMIN [Suspect]
     Active Substance: METFORMIN HYDROCHLORIDE
     Indication: Weight decreased
     Dosage: 700 MG, DAILY
  6. METFORMIN [Suspect]
     Active Substance: METFORMIN HYDROCHLORIDE
     Dosage: 500 MG, DAILY FOR WEIGHT LOSS
  7. LIRAGLUTIDE [Suspect]
     Active Substance: LIRAGLUTIDE
     Dosage: 0.6 MG, DAILY
  8. ASPIRIN [Suspect]
     Active Substance: ASPIRIN
     Dosage: 100 MG, DAILY
  9. ATORVASTATIN [Suspect]
     Active Substance: ATORVASTATIN
     Dosage: 40 MG, DAILY
  10. LEVOTHYROXINE [Suspect]
     Active Substance: LEVOTHYROXINE\LEVOTHYROXINE SODIUM
     Dosage: 0.137 MG, DAILY
  11. TRAZODONE [Suspect]
     Active Substance: TRAZODONE HYDROCHLORIDE
     Dosage: 300 MG, DAILY
  12. HERBALS [Suspect]
     Active Substance: HERBALS
     Indication: Weight decreased
     Dosage: 980 MG, DAILY
  13. HERBALS [Suspect]
     Active Substance: HERBALS
     Indication: Weight decreased
     Dosage: 1000 MG, DAILY
  14. FUROSEMIDE [Suspect]
     Active Substance: FUROSEMIDE
     Indication: Weight decreased
     Dosage: 50 MG, DAILY
  15. PHENOLPHTHALEIN [Suspect]
     Active Substance: PHENOLPHTHALEIN
     Indication: Weight decreased
     Dosage: 160 MG, DAILY
  16. CHLORDIAZEPOXIDE [Suspect]
     Active Substance: CHLORDIAZEPOXIDE
     Indication: Weight decreased
     Dosage: 16 MG, DAILY
  17. BUPROPION [Suspect]
     Active Substance: BUPROPION
     Indication: Weight decreased
     Dosage: 300 MG, DAILY

REACTIONS (1)
  - Rhabdomyolysis [Recovering/Resolving]
